FAERS Safety Report 10207620 (Version 1)
Quarter: 2014Q2

REPORT INFORMATION
  Report Type: Spontaneous
  Country: US (occurrence: None)
  Receive Date: 20140527
  Receipt Date: 20140527
  Transmission Date: 20141212
  Serious: Yes (Hospitalization)
  Sender: FDA-Public Use
  Company Number: None

PATIENT
  Age: 40 Year
  Sex: Male

DRUGS (2)
  1. FENOFIBRATE [Suspect]
     Indication: BLOOD TRIGLYCERIDES INCREASED
     Dates: start: 201005, end: 201102
  2. OXYCODONE [Concomitant]

REACTIONS (8)
  - Cholelithiasis [None]
  - Hepatic fibrosis [None]
  - Hepatic steatosis [None]
  - Pancreatitis [None]
  - Weight decreased [None]
  - Muscle atrophy [None]
  - Drug-induced liver injury [None]
  - Hepatitis cholestatic [None]
